FAERS Safety Report 4984126-X (Version None)
Quarter: 2006Q2

REPORT INFORMATION
  Report Type: 
  Country: None (occurrence: None)
  Receive Date: 20060427
  Receipt Date: 20060418
  Transmission Date: 20061013
  Serious: Yes (Hospitalization)
  Sender: FDA-Public Use
  Company Number: US-JNJFOC-20060103209

PATIENT
  Sex: Male
  Weight: 67.13 kg

DRUGS (15)
  1. REMICADE [Suspect]
     Route: 042
  2. REMICADE [Suspect]
     Route: 042
  3. REMICADE [Suspect]
     Route: 042
  4. REMICADE [Suspect]
     Route: 042
  5. REMICADE [Suspect]
     Route: 042
  6. REMICADE [Suspect]
     Route: 042
  7. REMICADE [Suspect]
     Route: 042
  8. REMICADE [Suspect]
     Route: 042
  9. REMICADE [Suspect]
     Indication: CROHN'S DISEASE
     Dosage: 3 INFUSIONS RECEIVED PRIOR TO BASELINE
     Route: 042
  10. MERCAPTOPURINE [Concomitant]
     Indication: CROHN'S DISEASE
  11. MESALAMINE [Concomitant]
     Indication: CROHN'S DISEASE
  12. ANTIBIOTICS [Concomitant]
     Indication: CROHN'S DISEASE
  13. NARCOTIC ANALGESICS [Concomitant]
     Indication: CROHN'S DISEASE
  14. ANTIDEPRESSANTS [Concomitant]
     Indication: CROHN'S DISEASE
  15. PREDNISONE [Concomitant]
     Indication: CROHN'S DISEASE

REACTIONS (2)
  - CROHN'S DISEASE [None]
  - DRUG WITHDRAWAL SYNDROME [None]
